FAERS Safety Report 10282007 (Version 4)
Quarter: 2014Q3

REPORT INFORMATION
  Report Type: Report from Study
  Country: US (occurrence: US)
  Receive Date: 20140707
  Receipt Date: 20140916
  Transmission Date: 20150326
  Serious: Yes (Hospitalization)
  Sender: FDA-Public Use
  Company Number: US-GLAXOSMITHKLINE-A1078276A

PATIENT
  Age: 81 Year
  Sex: Female
  Weight: 89 kg

DRUGS (8)
  1. TRAMETINIB [Suspect]
     Active Substance: TRAMETINIB
     Indication: COLORECTAL CANCER METASTATIC
     Dosage: 2MG PER DAY
     Route: 048
     Dates: start: 20140520, end: 20140618
  2. SINGULAIR [Concomitant]
     Active Substance: MONTELUKAST SODIUM
  3. STEROID [Concomitant]
     Active Substance: UNSPECIFIED INGREDIENT
  4. GSK2141795 [Suspect]
     Active Substance: UPROSERTIB
     Indication: COLORECTAL CANCER METASTATIC
     Dosage: 300MG WEEKLY
     Route: 048
     Dates: start: 20140520, end: 20140603
  5. ANTIBIOTICS [Concomitant]
     Active Substance: UNSPECIFIED INGREDIENT
     Route: 061
  6. LOMOTIL [Concomitant]
     Active Substance: ATROPINE SULFATE\DIPHENOXYLATE HYDROCHLORIDE
  7. ADVAIR HFA [Concomitant]
     Active Substance: FLUTICASONE PROPIONATE\SALMETEROL XINAFOATE
  8. VENTOLIN [Concomitant]
     Active Substance: ALBUTEROL SULFATE

REACTIONS (1)
  - Respiratory failure [Recovered/Resolved]

NARRATIVE: CASE EVENT DATE: 20140619
